FAERS Safety Report 4755890-X (Version None)
Quarter: 2005Q3

REPORT INFORMATION
  Report Type: 
  Country: None (occurrence: None)
  Receive Date: 20050830
  Receipt Date: 20050725
  Transmission Date: 20060218
  Serious: Yes (Other)
  Sender: FDA-Public Use
  Company Number: US-BRISTOL-MYERS SQUIBB COMPANY-13049648

PATIENT
  Sex: Female

DRUGS (1)
  1. ERBITUX [Suspect]
     Dosage: WKLY TX HAD BEEN DELAYED.

REACTIONS (1)
  - RASH [None]
